FAERS Safety Report 8110495-8 (Version None)
Quarter: 2012Q1

REPORT INFORMATION
  Report Type: 
  Country: None (occurrence: None)
  Receive Date: 20120202
  Receipt Date: 20120124
  Transmission Date: 20120608
  Serious: Yes (Other)
  Sender: FDA-Public Use
  Company Number: US-ASTRAZENECA-2012SE04731

PATIENT
  Sex: Male

DRUGS (2)
  1. SEROQUEL [Suspect]
     Route: 048
     Dates: start: 20100101
  2. SEROQUEL [Suspect]
     Route: 048

REACTIONS (8)
  - HAEMORRHAGE [None]
  - ANXIETY [None]
  - FEELING JITTERY [None]
  - DRUG DOSE OMISSION [None]
  - HEADACHE [None]
  - WITHDRAWAL SYNDROME [None]
  - TREMOR [None]
  - DRUG EFFECT DECREASED [None]
